FAERS Safety Report 8468833-2 (Version None)
Quarter: 2012Q2

REPORT INFORMATION
  Report Type: 
  Country: None (occurrence: None)
  Receive Date: 20120626
  Receipt Date: 20120625
  Transmission Date: 20120825
  Serious: Yes (Hospitalization)
  Sender: FDA-Public Use
  Company Number: AT-ROCHE-GNE219034

PATIENT
  Sex: Female
  Weight: 60 kg

DRUGS (9)
  1. ENDOBULIN [Concomitant]
     Indication: PRODUCT USED FOR UNKNOWN INDICATION
     Dates: start: 20051103, end: 20051103
  2. MABTHERA [Suspect]
     Indication: B-CELL LYMPHOMA
     Dosage: 675.5 MG, UNK, LAST DOSE PRIOR TO SAE 24 OCT 2005
     Route: 042
     Dates: start: 20051024, end: 20051214
  3. SERACTIL [Concomitant]
     Indication: PRODUCT USED FOR UNKNOWN INDICATION
     Dates: start: 20051025, end: 20051030
  4. ENDOBULIN [Concomitant]
     Dosage: 1000 MG, UNK
     Dates: start: 20051114, end: 20051114
  5. CEFTRIAXONE [Concomitant]
     Indication: PRODUCT USED FOR UNKNOWN INDICATION
     Dosage: 6 G, UNK
     Dates: start: 20051104, end: 20051121
  6. FAMVIR [Concomitant]
     Indication: PRODUCT USED FOR UNKNOWN INDICATION
     Dosage: 500 UNK, UNK
     Route: 048
     Dates: start: 20051110, end: 20051112
  7. ZOVIRAX [Concomitant]
     Indication: PRODUCT USED FOR UNKNOWN INDICATION
     Dosage: 750 MG, UNK
     Route: 042
     Dates: start: 20051031, end: 20051121
  8. MEXALEN [Concomitant]
     Indication: PRODUCT USED FOR UNKNOWN INDICATION
     Dates: start: 20051025
  9. ENDOBULIN [Concomitant]
     Dosage: 1000 MG, UNK
     Dates: start: 20051121, end: 20051121

REACTIONS (2)
  - PNEUMONIA [None]
  - ENCEPHALITIS [None]
